FAERS Safety Report 24820398 (Version 1)
Quarter: 2025Q1

REPORT INFORMATION
  Report Type: Spontaneous
  Country: US (occurrence: None)
  Receive Date: 20250108
  Receipt Date: 20250108
  Transmission Date: 20250409
  Serious: Yes (Life-Threatening, Hospitalization, Other)
  Sender: FDA-CTU
  Company Number: None

PATIENT
  Age: 50 Year
  Sex: Female
  Weight: 85.7 kg

DRUGS (10)
  1. OLANZAPINE [Suspect]
     Active Substance: OLANZAPINE
     Indication: Agitation
     Route: 042
  2. OLANZAPINE [Suspect]
     Active Substance: OLANZAPINE
     Indication: Cannabinoid hyperemesis syndrome
  3. CLONIDINE [Suspect]
     Active Substance: CLONIDINE
  4. DULOXETINE [Suspect]
     Active Substance: DULOXETINE
  5. HYDROXYZINE [Suspect]
     Active Substance: HYDROXYZINE HYDROCHLORIDE
  6. LEVETIRACETAM [Suspect]
     Active Substance: LEVETIRACETAM
  7. MIDAZOLAM [Suspect]
     Active Substance: MIDAZOLAM
  8. OMEPRAZOLE [Suspect]
     Active Substance: OMEPRAZOLE
  9. PREGABALIN [Suspect]
     Active Substance: PREGABALIN
  10. CANNABIS SATIVA SUBSP. INDICA TOP [Suspect]
     Active Substance: CANNABIS SATIVA SUBSP. INDICA TOP

REACTIONS (9)
  - Abdominal pain [None]
  - Constipation [None]
  - Nausea [None]
  - Vomiting [None]
  - Agitation [None]
  - Hypertension [None]
  - Cannabinoid hyperemesis syndrome [None]
  - Blood pressure decreased [None]
  - Bradycardia [None]

NARRATIVE: CASE EVENT DATE: 20250106
